FAERS Safety Report 4457736-6 (Version None)
Quarter: 2004Q3

REPORT INFORMATION
  Report Type: 
  Country: None (occurrence: None)
  Receive Date: 20040922
  Receipt Date: 20040901
  Transmission Date: 20050211
  Serious: Yes (Hospitalization, Other)
  Sender: FDA-Public Use
  Company Number: 2004-DE-04634GD

PATIENT
  Age: 10 Year
  Sex: Male

DRUGS (7)
  1. LITHIUM CARBONATE [Suspect]
     Indication: BIPOLAR DISORDER
     Dosage: 1200 MG TWICE DAILY
  2. CLONIDINE HCL [Suspect]
     Dosage: 0.4 MG (TWICE DAILY)
  3. METHYLPHENIDATE HCL [Suspect]
     Dosage: 36 MG (ONCE DAILY) (IN THE MORNING)
  4. ESCITALOPRAM (ESCITALOPRAM) [Suspect]
     Dosage: 10 MG (ONCE DAILY)
  5. OXACARBAZINE (ANTIEPILEPTICS) [Suspect]
     Dosage: 600 MG (ONCE DAILY)
  6. DEPAKOTE [Suspect]
     Dosage: SEE IMAGE
  7. LEVOTHYROXINE SODIUM [Suspect]
     Indication: HYPOTHYROIDISM
     Dosage: 0.05 MG (ONCE DAILY)

REACTIONS (19)
  - ABDOMINAL PAIN [None]
  - ATRIOVENTRICULAR BLOCK FIRST DEGREE [None]
  - CHEST PAIN [None]
  - DIARRHOEA [None]
  - DISORIENTATION [None]
  - DIZZINESS [None]
  - DRUG INTERACTION [None]
  - HYPERHIDROSIS [None]
  - HYPOTENSION [None]
  - HYPOTHYROIDISM [None]
  - MARKEDLY REDUCED DIETARY INTAKE [None]
  - PALLOR [None]
  - PALPITATIONS [None]
  - RHYTHM IDIOVENTRICULAR [None]
  - THERAPEUTIC AGENT TOXICITY [None]
  - VENTRICULAR EXTRASYSTOLES [None]
  - VENTRICULAR TACHYCARDIA [None]
  - VOMITING [None]
  - WHITE BLOOD CELL COUNT INCREASED [None]
